FAERS Safety Report 6402463-9 (Version None)
Quarter: 2009Q4

REPORT INFORMATION
  Report Type: 
  Country: None (occurrence: None)
  Receive Date: 20091015
  Receipt Date: 20091007
  Transmission Date: 20100525
  Serious: Yes (Death)
  Sender: FDA-Public Use
  Company Number: US-ABBOTT-09P-163-0601310-00

PATIENT
  Sex: Female
  Weight: 136.2 kg

DRUGS (2)
  1. VICODIN [Suspect]
     Indication: ANKLE FRACTURE
     Dosage: 5/500 MG
     Dates: start: 20081018
  2. LEXAPRO [Suspect]
     Indication: DEPRESSION
     Dosage: 10 MG OR 20 MG

REACTIONS (2)
  - OVERDOSE [None]
  - SUBDURAL HAEMORRHAGE [None]
